FAERS Safety Report 6142861-4 (Version None)
Quarter: 2009Q2

REPORT INFORMATION
  Report Type: 
  Country: None (occurrence: None)
  Receive Date: 20090403
  Receipt Date: 20090330
  Transmission Date: 20091009
  Serious: Yes (Death, Other)
  Sender: FDA-Public Use
  Company Number: GB-JNJFOC-20090307032

PATIENT
  Age: 12 Month
  Sex: Female

DRUGS (4)
  1. LEUSTAT [Suspect]
     Indication: DRUG USE FOR UNKNOWN INDICATION
     Route: 042
  2. METHYLPREDNISOLONE 4MG TAB [Concomitant]
     Route: 065
  3. CYTARABINE [Concomitant]
     Route: 065
  4. ANTIEMETICS [Concomitant]
     Route: 065

REACTIONS (3)
  - DEATH [None]
  - GASTROINTESTINAL HAEMORRHAGE [None]
  - MUCOSAL INFLAMMATION [None]
